FAERS Safety Report 7007552-6 (Version None)
Quarter: 2010Q3

REPORT INFORMATION
  Report Type: 
  Country: None (occurrence: None)
  Receive Date: 20100922
  Receipt Date: 20100917
  Transmission Date: 20110219
  Serious: Yes (Hospitalization, Other)
  Sender: FDA-Public Use
  Company Number: BR-PFIZER INC-2010118542

PATIENT
  Sex: Female

DRUGS (1)
  1. CELEBRA [Suspect]
     Indication: INJURY
     Dosage: 200 MG, 2X/DAY
     Route: 048

REACTIONS (2)
  - HYPERGLYCAEMIA [None]
  - MALAISE [None]
